FAERS Safety Report 12806169 (Version 2)
Quarter: 2016Q4

REPORT INFORMATION
  Report Type: Spontaneous
  Country: TH (occurrence: TH)
  Receive Date: 20161004
  Receipt Date: 20161006
  Transmission Date: 20170207
  Serious: No
  Sender: FDA-Public Use
  Company Number: PHHY2016TH133742

PATIENT
  Age: 44 Year
  Sex: Female

DRUGS (1)
  1. GILENYA [Suspect]
     Active Substance: FINGOLIMOD HYDROCHLORIDE
     Indication: MULTIPLE SCLEROSIS
     Dosage: UNK
     Route: 065
     Dates: start: 201208

REACTIONS (9)
  - Limb discomfort [Unknown]
  - Muscle spasticity [Unknown]
  - Gait disturbance [Unknown]
  - Fatigue [Unknown]
  - Multiple sclerosis [Unknown]
  - Pain in extremity [Unknown]
  - Paraesthesia [Unknown]
  - White matter lesion [Unknown]
  - Depression [Unknown]

NARRATIVE: CASE EVENT DATE: 201209
